FAERS Safety Report 17324070 (Version 2)
Quarter: 2020Q1

REPORT INFORMATION
  Report Type: Spontaneous
  Country: JP (occurrence: JP)
  Receive Date: 20200127
  Receipt Date: 20200224
  Transmission Date: 20200409
  Serious: Yes (Death, Hospitalization, Other)
  Sender: FDA-Public Use
  Company Number: JP-BRISTOL-MYERS SQUIBB COMPANY-BMS-2019-124284

PATIENT
  Age: 73 Year
  Sex: Female
  Weight: 60 kg

DRUGS (8)
  1. ELIQUIS [Suspect]
     Active Substance: APIXABAN
     Indication: CEREBROVASCULAR ACCIDENT PROPHYLAXIS
     Dosage: 2.5 MILLIGRAM, BID
     Route: 048
     Dates: start: 20180208, end: 20190920
  2. AZELNIDIPINE [Concomitant]
     Active Substance: AZELNIDIPINE
     Indication: HYPERTENSION
     Dosage: 16 MILLIGRAM, QD
     Route: 048
     Dates: start: 20180727, end: 20190920
  3. LINZESS [Concomitant]
     Active Substance: LINACLOTIDE
     Indication: CONSTIPATION
     Dosage: 0.5 MILLIGRAM, QD
     Route: 048
     Dates: start: 20180501, end: 20190920
  4. BISONO [Concomitant]
     Active Substance: BISOPROLOL
     Indication: ATRIAL FIBRILLATION
     Route: 065
  5. DEBERZA [Suspect]
     Active Substance: TOFOGLIFLOZIN
     Indication: DIABETES MELLITUS
     Dosage: 10 MILLIGRAM, QD
     Route: 048
     Dates: start: 20190510, end: 20190920
  6. LOSARTAN POTASSIUM. [Suspect]
     Active Substance: LOSARTAN POTASSIUM
     Indication: HYPERTENSION
     Dosage: 2.5 MILLIGRAM, QD
     Route: 048
     Dates: start: 20190509, end: 20190920
  7. BISONO [Concomitant]
     Active Substance: BISOPROLOL
     Indication: HYPERTENSION
     Dosage: 8 MILLIGRAM, QD
     Route: 061
     Dates: start: 20180530, end: 20190920
  8. LANSOPRAZOLE. [Concomitant]
     Active Substance: LANSOPRAZOLE
     Indication: GASTROOESOPHAGEAL REFLUX DISEASE
     Dosage: 15 MILLIGRAM, QD
     Route: 048
     Dates: start: 20180308, end: 20190920

REACTIONS (2)
  - Brain stem haemorrhage [Fatal]
  - Renal impairment [Unknown]

NARRATIVE: CASE EVENT DATE: 20190827
